FAERS Safety Report 4485544-9 (Version None)
Quarter: 2004Q4

REPORT INFORMATION
  Report Type: 
  Country: None (occurrence: None)
  Receive Date: 20041022
  Receipt Date: 20041006
  Transmission Date: 20050328
  Serious: Yes (Death)
  Sender: FDA-Public Use
  Company Number: 2004AL001036

PATIENT
  Age: 5 Year

DRUGS (1)
  1. CARBAMAZEPINE [Suspect]
     Indication: CONVULSION
     Dosage: PO
     Route: 048

REACTIONS (10)
  - ADVERSE EVENT [None]
  - AREFLEXIA [None]
  - BRAIN DEATH [None]
  - CARDIAC OUTPUT DECREASED [None]
  - CARDIO-RESPIRATORY ARREST [None]
  - COMA [None]
  - HYPOTENSION [None]
  - NERVOUS SYSTEM DISORDER [None]
  - OVERDOSE [None]
  - PUPILLARY LIGHT REFLEX TESTS ABNORMAL [None]
